FAERS Safety Report 6520757-3 (Version None)
Quarter: 2009Q4

REPORT INFORMATION
  Report Type: 
  Country: None (occurrence: None)
  Receive Date: 20091229
  Receipt Date: 20091218
  Transmission Date: 20100525
  Serious: Yes (Hospitalization)
  Sender: FDA-Public Use
  Company Number: CA-JNJFOC-20091206117

PATIENT
  Sex: Male
  Weight: 54 kg

DRUGS (4)
  1. REMICADE [Suspect]
     Route: 042
  2. REMICADE [Suspect]
     Dosage: INFUSION 2-3 ON UNSPECIFIED DATES
     Route: 042
  3. REMICADE [Suspect]
     Indication: CROHN'S DISEASE
     Route: 042
  4. ASACOL [Concomitant]

REACTIONS (3)
  - BACK PAIN [None]
  - SWELLING [None]
  - VOMITING [None]
